FAERS Safety Report 16596280 (Version 3)
Quarter: 2019Q3

REPORT INFORMATION
  Report Type: Spontaneous
  Country: DE (occurrence: DE)
  Receive Date: 20190719
  Receipt Date: 20190723
  Transmission Date: 20191004
  Serious: Yes (Other)
  Sender: FDA-Public Use
  Company Number: DE-ABBVIE-19K-062-2853889-00

PATIENT
  Age: 21 Year
  Sex: Male
  Weight: 56 kg

DRUGS (5)
  1. MTX [Suspect]
     Active Substance: METHOTREXATE SODIUM
     Indication: PRODUCT USED FOR UNKNOWN INDICATION
     Route: 065
     Dates: start: 2001
  2. REMICADE [Suspect]
     Active Substance: INFLIXIMAB
     Indication: PRODUCT USED FOR UNKNOWN INDICATION
     Route: 065
     Dates: end: 2017
  3. HUMIRA [Suspect]
     Active Substance: ADALIMUMAB
     Dosage: LOW DOSE
     Route: 058
     Dates: start: 201901
  4. HUMIRA [Suspect]
     Active Substance: ADALIMUMAB
     Indication: JUVENILE IDIOPATHIC ARTHRITIS
     Route: 058
     Dates: start: 2001
  5. MTX [Suspect]
     Active Substance: METHOTREXATE SODIUM
     Route: 065
     Dates: start: 201901

REACTIONS (10)
  - Synovitis [Unknown]
  - Nausea [Unknown]
  - Liver function test increased [Unknown]
  - Liver function test increased [Unknown]
  - Drug ineffective [Unknown]
  - Uveitis [Unknown]
  - Weight increased [Unknown]
  - Drug ineffective [Recovered/Resolved]
  - Autoimmune hepatitis [Recovering/Resolving]
  - Polyarthritis [Unknown]

NARRATIVE: CASE EVENT DATE: 2001
